FAERS Safety Report 26092628 (Version 1)
Quarter: 2025Q4

REPORT INFORMATION
  Report Type: Spontaneous
  Country: CN (occurrence: CN)
  Receive Date: 20251126
  Receipt Date: 20251126
  Transmission Date: 20260117
  Serious: Yes (Hospitalization, Other)
  Sender: ALKEM
  Company Number: None

PATIENT
  Age: 62 Year
  Sex: Male

DRUGS (14)
  1. MYCOPHENOLATE MOFETIL [Suspect]
     Active Substance: MYCOPHENOLATE MOFETIL
     Indication: Prophylaxis against graft versus host disease
     Dosage: 750 MILLIGRAM, TID (FOR EVERY 8 HOUR)
     Route: 065
     Dates: start: 20230723
  2. AZACITIDINE [Suspect]
     Active Substance: AZACITIDINE
     Indication: Immunosuppressant drug therapy
     Dosage: 100 MILLIGRAM, QD
     Route: 065
     Dates: start: 20230505, end: 20230511
  3. AZACITIDINE [Suspect]
     Active Substance: AZACITIDINE
     Dosage: 100 MILLIGRAM, QD
     Route: 065
     Dates: start: 20230531, end: 20230606
  4. AZACITIDINE [Suspect]
     Active Substance: AZACITIDINE
     Dosage: 100 MILLIGRAM, QD
     Route: 065
     Dates: start: 20230628, end: 20230703
  5. CYCLOPHOSPHAMIDE [Suspect]
     Active Substance: CYCLOPHOSPHAMIDE
     Indication: Infection prophylaxis
     Dosage: 2 GRAM PER SQUARE METRE
     Route: 065
     Dates: start: 20230718, end: 20230719
  6. CYCLOSPORINE [Suspect]
     Active Substance: CYCLOSPORINE
     Indication: Prophylaxis against graft versus host disease
     Dosage: 90 MILLIGRAM, QD (EVERY 1 DAY)
     Route: 065
     Dates: start: 20230723
  7. CYTARABINE [Suspect]
     Active Substance: CYTARABINE
     Indication: Bone marrow conditioning regimen
     Dosage: 7.5 GRAM PER SQUARE METRE
     Route: 065
     Dates: start: 20230718, end: 20230722
  8. FLUDARABINE [Suspect]
     Active Substance: FLUDARABINE PHOSPHATE
     Indication: Bone marrow conditioning regimen
     Dosage: 180 MILLIGRAM/SQ. METER
     Route: 065
     Dates: start: 20230718, end: 20230722
  9. RUXOLITINIB [Suspect]
     Active Substance: RUXOLITINIB
     Indication: Primary myelofibrosis
     Dosage: 10 MILLIGRAM, BID (EVERY 12 HOUR)
     Route: 065
  10. ASPIRIN [Concomitant]
     Active Substance: ASPIRIN
     Indication: Essential thrombocythaemia
     Dosage: UNK
     Route: 065
     Dates: start: 20201016
  11. GANCICLOVIR [Concomitant]
     Active Substance: GANCICLOVIR
     Indication: Infection prophylaxis
     Dosage: )200 MILLIGRAM, BID (EVERY 12 HOUR)
     Route: 065
     Dates: start: 20230718
  12. HYDROXYUREA [Concomitant]
     Active Substance: HYDROXYUREA
     Indication: Essential thrombocythaemia
     Dosage: UNK
     Route: 065
     Dates: start: 20201016
  13. MICAFUNGIN [Concomitant]
     Active Substance: MICAFUNGIN SODIUM
     Indication: Infection prophylaxis
     Dosage: 100 MILLIGRAM, QD (EVERY 1 DAY)`
     Route: 065
     Dates: start: 20230718
  14. VANCOMYCIN [Concomitant]
     Active Substance: VANCOMYCIN
     Indication: Infection prophylaxis
     Dosage: 4.5 GRAM, TID (EVERY 8 HOUR)
     Route: 065
     Dates: start: 20230718

REACTIONS (4)
  - Viral haemorrhagic cystitis [Recovered/Resolved]
  - BK virus infection [Recovered/Resolved]
  - Infection reactivation [Recovered/Resolved]
  - Respiratory syncytial virus infection [Recovered/Resolved]

NARRATIVE: CASE EVENT DATE: 20230810
